FAERS Safety Report 8286675 (Version 2)
Quarter: 2012Q4

REPORT INFORMATION
  Report Type: 
  Country: US (occurrence: US)
  Receive Date: 20111122
  Receipt Date: 20121126
  Transmission Date: 20130627
  Serious: Yes (Disabling, Other)
  Sender: FDA-Public Use
  Company Number: PHHY2011US54797

PATIENT
  Age: 51 Year
  Sex: Male
  Weight: 74.38 kg

DRUGS (3)
  1. GILENYA [Suspect]
     Indication: MULTIPLE SCLEROSIS
     Dosage: 1 DF, QD
     Route: 048
     Dates: start: 20110617
  2. GILENYA [Suspect]
     Dosage: 0.5 mg, daily
     Route: 048
     Dates: start: 20110617
  3. LEVETIRACETAM [Concomitant]
     Indication: EPILEPSY
     Route: 048

REACTIONS (5)
  - Periarthritis [Unknown]
  - Musculoskeletal pain [Unknown]
  - Limb discomfort [Not Recovered/Not Resolved]
  - Fatigue [Recovered/Resolved]
  - Paraesthesia [Not Recovered/Not Resolved]
